FAERS Safety Report 8301354-6 (Version None)
Quarter: 2012Q2

REPORT INFORMATION
  Report Type: 
  Country: None (occurrence: None)
  Receive Date: 20120420
  Receipt Date: 20120418
  Transmission Date: 20120825
  Serious: Yes (Death, Hospitalization, Other)
  Sender: FDA-Public Use
  Company Number: US-ABBOTT-12P-163-0917016-00

PATIENT
  Age: 63 Year
  Sex: Female

DRUGS (17)
  1. ZOLOFT [Concomitant]
     Indication: PRODUCT USED FOR UNKNOWN INDICATION
     Dosage: DAILY DOSE: 100MG
  2. VICODIN [Concomitant]
     Indication: PAIN
  3. LOMOTIL [Concomitant]
     Indication: DIARRHOEA
  4. VANCOMYCIN [Suspect]
     Indication: PRODUCT USED FOR UNKNOWN INDICATION
  5. TOBRAMYCIN [Suspect]
     Indication: PRODUCT USED FOR UNKNOWN INDICATION
  6. TIGECYCLINE [Suspect]
     Indication: PRODUCT USED FOR UNKNOWN INDICATION
  7. BENTYL [Concomitant]
     Indication: GASTRIC DISORDER
  8. POTASSIUM CHLORIDE [Concomitant]
     Indication: PRODUCT USED FOR UNKNOWN INDICATION
     Dosage: DAILY DOSE: 20 MEQ
  9. SOMA [Concomitant]
     Indication: PAIN
  10. NORVASC [Concomitant]
     Indication: PRODUCT USED FOR UNKNOWN INDICATION
     Dosage: DAILY DOSE: 2.5MG
  11. HUMIRA [Suspect]
     Indication: CROHN'S DISEASE
  12. ACIPHEX [Concomitant]
     Indication: PRODUCT USED FOR UNKNOWN INDICATION
     Dosage: DAILY DOSE: 20MG
  13. BUPROPION HCL [Concomitant]
     Indication: PRODUCT USED FOR UNKNOWN INDICATION
     Dosage: DAILY DOSE: 150MG
  14. QUINAPRIL AND HYDROCHLOROTHIAZIDE [Concomitant]
     Indication: PRODUCT USED FOR UNKNOWN INDICATION
     Dosage: DAILY DOSE: 40MG
  15. AMBIEN [Concomitant]
     Indication: INSOMNIA
  16. BYSTOLIC [Concomitant]
     Indication: PRODUCT USED FOR UNKNOWN INDICATION
     Dosage: DAILY DOSE: 10MG
  17. FUROSEMIDE [Concomitant]
     Indication: PRODUCT USED FOR UNKNOWN INDICATION
     Dosage: DAILY DOSE: 40MG

REACTIONS (11)
  - PNEUMONIA [None]
  - RENAL FAILURE ACUTE [None]
  - SCRATCH [None]
  - FALL [None]
  - STAPHYLOCOCCAL INFECTION [None]
  - SEPTIC SHOCK [None]
  - FUNGAL SEPSIS [None]
  - INFARCTION [None]
  - WRIST FRACTURE [None]
  - LIGAMENT SPRAIN [None]
  - MALAISE [None]
